FAERS Safety Report 12234894 (Version 1)
Quarter: 2016Q2

REPORT INFORMATION
  Report Type: Spontaneous
  Country: BR (occurrence: BR)
  Receive Date: 20160404
  Receipt Date: 20160404
  Transmission Date: 20160815
  Serious: Yes (Hospitalization, Other)
  Sender: FDA-Public Use
  Company Number: BR-JNJFOC-20160328947

PATIENT
  Age: 33 Year
  Sex: Female

DRUGS (5)
  1. XARELTO [Suspect]
     Active Substance: RIVAROXABAN
     Indication: PULMONARY EMBOLISM
     Route: 048
     Dates: start: 20160120
  2. LOSARTAN. [Concomitant]
     Active Substance: LOSARTAN
     Indication: HYPERTENSION
     Route: 048
     Dates: start: 2006
  3. BEROTEC [Concomitant]
     Active Substance: FENOTEROL HYDROBROMIDE
     Indication: ASTHMA
     Route: 055
  4. BETAFERON [Suspect]
     Active Substance: INTERFERON BETA-1B
     Indication: RELAPSING-REMITTING MULTIPLE SCLEROSIS
     Route: 058
     Dates: start: 201303
  5. SERTRALINE [Concomitant]
     Active Substance: SERTRALINE HYDROCHLORIDE
     Indication: ANXIETY
     Route: 048
     Dates: start: 20160120

REACTIONS (10)
  - Pelvic fracture [Not Recovered/Not Resolved]
  - Burns third degree [Not Recovered/Not Resolved]
  - Pulmonary embolism [Recovering/Resolving]
  - Injection site haematoma [Not Recovered/Not Resolved]
  - Hand fracture [Recovered/Resolved]
  - Road traffic accident [Recovered/Resolved]
  - Foot operation [Recovered/Resolved]
  - Injection site haematoma [Not Recovered/Not Resolved]
  - Road traffic accident [Recovering/Resolving]
  - Fall [Recovered/Resolved]

NARRATIVE: CASE EVENT DATE: 201308
